FAERS Safety Report 4387189-8 (Version None)
Quarter: 2004Q2

REPORT INFORMATION
  Report Type: 
  Country: None (occurrence: None)
  Receive Date: 20040625
  Receipt Date: 20040617
  Transmission Date: 20050107
  Serious: Yes (Other)
  Sender: FDA-Public Use
  Company Number: 2004-06-1056

PATIENT
  Age: 37 Year
  Sex: Female

DRUGS (3)
  1. LORATADINE [Suspect]
     Indication: DRUG USE FOR UNKNOWN INDICATION
     Dosage: UNKNOWN ORAL
     Route: 048
  2. AMLODPINE [Concomitant]
  3. IRBESARTAN [Concomitant]

REACTIONS (1)
  - VASCULITIS [None]
